FAERS Safety Report 5248436-3 (Version None)
Quarter: 2007Q1

REPORT INFORMATION
  Report Type: 
  Country: None (occurrence: None)
  Receive Date: 20070227
  Receipt Date: 20070220
  Transmission Date: 20070707
  Serious: Yes (Hospitalization, Other)
  Sender: FDA-Public Use
  Company Number: ES-MERCK-0702ESP00027

PATIENT
  Age: 31 Year
  Sex: Male

DRUGS (4)
  1. SINGULAIR [Suspect]
     Indication: ASTHMA
     Route: 048
     Dates: start: 20060201, end: 20070204
  2. SINGULAIR [Suspect]
     Indication: RHINITIS
     Route: 048
     Dates: start: 20060201, end: 20070204
  3. BUDESONIDE AND FORMOTEROL FUMARATE [Concomitant]
     Indication: RHINITIS
     Dates: start: 20050101
  4. TERBUTALINE SULFATE [Concomitant]
     Indication: RHINITIS
     Dates: start: 20050101

REACTIONS (2)
  - ALLERGIC GRANULOMATOUS ANGIITIS [None]
  - ASTHMATIC CRISIS [None]
